FAERS Safety Report 20554901 (Version 3)
Quarter: 2022Q2

REPORT INFORMATION
  Report Type: Report from Study
  Country: CN (occurrence: None)
  Receive Date: 20220304
  Receipt Date: 20220609
  Transmission Date: 20220721
  Serious: Yes (Hospitalization)
  Sender: FDA-Public Use
  Company Number: CN-ROCHE-3035915

PATIENT
  Age: 57 Year
  Sex: Female
  Weight: 62 kg

DRUGS (3)
  1. TRASTUZUMAB [Suspect]
     Active Substance: TRASTUZUMAB
     Indication: Breast cancer
     Dosage: THE DATE OF THE LAST DOSE OF TRASTUZUMAB IS 20-JAN-2022
     Route: 041
     Dates: start: 20210310
  2. PYROTINIB MALEATE [Suspect]
     Active Substance: PYROTINIB MALEATE
     Indication: Breast cancer
     Route: 048
     Dates: start: 20210310
  3. DOCETAXEL [Suspect]
     Active Substance: DOCETAXEL
     Indication: Breast cancer
     Dosage: THE DATE OF THE LAST DOSE OF DOCETAXEL IS 20-JAN-2022
     Route: 041
     Dates: start: 20210310

REACTIONS (1)
  - Ventricular extrasystoles [Recovered/Resolved]

NARRATIVE: CASE EVENT DATE: 20220210
